FAERS Safety Report 6877280-6 (Version None)
Quarter: 2010Q3

REPORT INFORMATION
  Report Type: 
  Country: None (occurrence: None)
  Receive Date: 20100727
  Receipt Date: 20090817
  Transmission Date: 20110219
  Serious: No
  Sender: FDA-Public Use
  Company Number: US-ABBOTT-09P-163-0592850-00

PATIENT
  Sex: Female
  Weight: 50.848 kg

DRUGS (3)
  1. SYNTHROID [Suspect]
     Indication: HYPOTHYROIDISM
     Dates: start: 19960101
  2. SYNTHROID [Suspect]
     Route: 048
     Dates: start: 20070101
  3. MEDROL [Suspect]
     Indication: URTICARIA
     Dosage: DOSE PACK
     Dates: start: 20090814, end: 20090815

REACTIONS (3)
  - HOT FLUSH [None]
  - IRRITABILITY [None]
  - URTICARIA [None]
